FAERS Safety Report 11985022 (Version 1)
Quarter: 2016Q1

REPORT INFORMATION
  Report Type: Spontaneous
  Country: FR (occurrence: FR)
  Receive Date: 20160201
  Receipt Date: 20160201
  Transmission Date: 20160526
  Serious: Yes (Other)
  Sender: FDA-Public Use
  Company Number: PHHY2015FR157621

PATIENT
  Age: 78 Year
  Sex: Male

DRUGS (5)
  1. ONBREZ BREEZHALER [Suspect]
     Active Substance: INDACATEROL
     Dosage: 300 UG, BID
     Route: 055
     Dates: start: 20150704, end: 20151119
  2. BRICANYL LP [Concomitant]
     Indication: PRODUCT USED FOR UNKNOWN INDICATION
     Dosage: 1 DF, QD
     Route: 048
     Dates: start: 20150716, end: 20151119
  3. ONBREZ BREEZHALER [Suspect]
     Active Substance: INDACATEROL
     Indication: CHRONIC OBSTRUCTIVE PULMONARY DISEASE
     Dosage: 300 UG, QD
     Route: 055
     Dates: start: 20150618
  4. KENACORT [Concomitant]
     Active Substance: TRIAMCINOLONE
     Indication: PRODUCT USED FOR UNKNOWN INDICATION
     Dosage: 4 DF, YEARLY
     Route: 065
     Dates: start: 20150704, end: 20150704
  5. KENACORT [Concomitant]
     Active Substance: TRIAMCINOLONE
     Dosage: 4 DF, YEARLY
     Route: 065
     Dates: start: 20151126, end: 20151126

REACTIONS (4)
  - Inappropriate schedule of drug administration [Recovered/Resolved]
  - Drug prescribing error [Unknown]
  - Off label use [Recovered/Resolved]
  - Respiratory distress [Recovered/Resolved]

NARRATIVE: CASE EVENT DATE: 20150704
